FAERS Safety Report 9345586 (Version 1)
Quarter: 2013Q2

REPORT INFORMATION
  Report Type: Spontaneous
  Country: US (occurrence: US)
  Receive Date: 20130613
  Receipt Date: 20130613
  Transmission Date: 20140414
  Serious: No
  Sender: FDA-Public Use
  Company Number: US-BAYER-2013-071450

PATIENT
  Sex: Female

DRUGS (1)
  1. MIRENA [Suspect]
     Indication: CONTRACEPTION
     Dosage: 20 MG/24HR, CONT
     Route: 015
     Dates: start: 2009

REACTIONS (6)
  - Feeling abnormal [None]
  - Malaise [None]
  - Abdominal pain upper [None]
  - Hypersomnia [None]
  - Headache [None]
  - Eating disorder [None]
